FAERS Safety Report 14221745 (Version 2)
Quarter: 2017Q4

REPORT INFORMATION
  Report Type: Spontaneous
  Country: DE (occurrence: DE)
  Receive Date: 20171124
  Receipt Date: 20171208
  Transmission Date: 20180321
  Serious: Yes (Death, Other)
  Sender: FDA-Public Use
  Company Number: DE-009507513-1711DEU008266

PATIENT
  Age: 54 Year
  Sex: Male
  Weight: 70 kg

DRUGS (1)
  1. ZEPATIER [Suspect]
     Active Substance: ELBASVIR\GRAZOPREVIR
     Indication: HEPATITIS C
     Dosage: DOSE REGIMEN APPROXIMATELY WEEKLY
     Route: 048
     Dates: start: 201709, end: 2017

REACTIONS (2)
  - Cardiac failure [Fatal]
  - Alcohol use disorder [Unknown]

NARRATIVE: CASE EVENT DATE: 2017
